FAERS Safety Report 8130360-X (Version None)
Quarter: 2012Q1

REPORT INFORMATION
  Report Type: 
  Country: None (occurrence: None)
  Receive Date: 20120210
  Receipt Date: 20120207
  Transmission Date: 20120608
  Serious: Yes (Other)
  Sender: FDA-Public Use
  Company Number: PHHY2012IT010581

PATIENT
  Sex: Male

DRUGS (1)
  1. ZOMETA [Suspect]
     Indication: PROSTATE CANCER
     Dosage: 1 DF, CYCLIC
     Route: 042
     Dates: start: 20090107, end: 20100505

REACTIONS (2)
  - OSTEONECROSIS OF JAW [None]
  - EXPOSED BONE IN JAW [None]
